FAERS Safety Report 9729823 (Version 2)
Quarter: 2013Q4

REPORT INFORMATION
  Report Type: Spontaneous
  Country: US (occurrence: US)
  Receive Date: 20131204
  Receipt Date: 20131204
  Transmission Date: 20140711
  Serious: Yes (Disabling, Other)
  Sender: FDA-Public Use
  Company Number: US-GILEAD-2009-0021847

PATIENT
  Sex: Male
  Weight: 99.34 kg

DRUGS (21)
  1. LETAIRIS [Suspect]
     Indication: PULMONARY HYPERTENSION
     Route: 048
     Dates: start: 20090417
  2. NORVASC [Concomitant]
  3. LIPITOR [Concomitant]
  4. ASPIRIN [Concomitant]
  5. FUROSEMIDE [Concomitant]
  6. SPIRIVA [Concomitant]
  7. TRIAMTERENE [Concomitant]
  8. PROVENTILE [Concomitant]
  9. SINGULAIR [Concomitant]
  10. ADVAIR [Concomitant]
  11. ALLEGRA [Concomitant]
  12. MISINEX [Concomitant]
  13. SYNTHROID [Concomitant]
  14. PREDNISONE [Concomitant]
  15. FLOMAX [Concomitant]
  16. OMEPRAZOLE [Concomitant]
  17. GLUCOSAMINE/CONDROINTEN [Concomitant]
  18. KLOR-DEL [Concomitant]
  19. MULTIVITAMIN [Concomitant]
  20. ARTHOZYME [Concomitant]
  21. PRO BIOTIC [Concomitant]

REACTIONS (4)
  - Weight increased [Recovered/Resolved]
  - Dyspnoea [Recovered/Resolved]
  - Fluid retention [Not Recovered/Not Resolved]
  - Drug ineffective [Unknown]
